FAERS Safety Report 17883316 (Version 2)
Quarter: 2020Q2

REPORT INFORMATION
  Report Type: Report from Study
  Country: None (occurrence: US)
  Receive Date: 20200611
  Receipt Date: 20200616
  Transmission Date: 20200714
  Serious: Yes (Other)
  Sender: FDA-Public Use
  Company Number: US-ABBVIE-20K-163-3312819-00

PATIENT
  Age: 75 Year
  Sex: Female

DRUGS (3)
  1. VENCLEXTA [Suspect]
     Active Substance: VENETOCLAX
     Indication: CHRONIC LYMPHOCYTIC LEUKAEMIA
     Route: 048
     Dates: start: 20190206
  2. VENCLEXTA [Suspect]
     Active Substance: VENETOCLAX
     Route: 048
     Dates: end: 202006
  3. VENCLEXTA [Suspect]
     Active Substance: VENETOCLAX
     Route: 048

REACTIONS (13)
  - Oral mucosal blistering [Unknown]
  - Gastrointestinal disorder [Unknown]
  - Influenza like illness [Unknown]
  - Irritable bowel syndrome [Unknown]
  - Dizziness [Unknown]
  - Urinary tract infection [Not Recovered/Not Resolved]
  - Coronary arterial stent insertion [Unknown]
  - Migraine [Unknown]
  - Vision blurred [Unknown]
  - Red blood cell count decreased [Unknown]
  - Stomatitis [Unknown]
  - Menopause [Unknown]
  - Atrophy [Unknown]

NARRATIVE: CASE EVENT DATE: 202004
